FAERS Safety Report 9294844 (Version 1)
Quarter: 2013Q2

REPORT INFORMATION
  Report Type: Report from Study
  Country: JP (occurrence: JP)
  Receive Date: 20130517
  Receipt Date: 20130517
  Transmission Date: 20140414
  Serious: Yes (Death, Other)
  Sender: FDA-Public Use
  Company Number: JP-GENZYME-THYM-1003798

PATIENT
  Age: 7 Year
  Sex: Male
  Weight: 22 kg

DRUGS (19)
  1. THYMOGLOBULIN [Suspect]
     Indication: BONE MARROW CONDITIONING REGIMEN
     Dosage: 43 MG, QD
     Route: 065
     Dates: start: 20110120, end: 20110126
  2. FLUCALIQ 2 [Concomitant]
     Indication: MALNUTRITION
     Dosage: UNK
     Route: 065
     Dates: start: 20101202, end: 20110308
  3. FRAGMIN [Concomitant]
     Indication: PULMONARY VENO-OCCLUSIVE DISEASE
     Dosage: UNK
     Route: 065
     Dates: start: 20110118, end: 20110226
  4. ONDANSETRON [Concomitant]
     Indication: VOMITING
     Dosage: UNK
     Route: 065
     Dates: start: 20110119, end: 20110123
  5. FLUDARA [Concomitant]
     Indication: NON-HODGKIN^S LYMPHOMA
     Dosage: UNK
     Route: 065
     Dates: start: 20110119, end: 20110123
  6. PRIDOL [Concomitant]
     Indication: ALLERGY PROPHYLAXIS
     Dosage: UNK
     Route: 065
     Dates: start: 20110120, end: 20110304
  7. MEROPEN [Concomitant]
     Indication: PNEUMONIA
     Dosage: UNK
     Route: 065
     Dates: start: 20110108, end: 20110308
  8. VANCOMYCIN [Concomitant]
     Indication: PNEUMONIA
     Dosage: UNK
     Route: 065
     Dates: start: 20110116, end: 20110214
  9. VFEND [Concomitant]
     Indication: SYSTEMIC MYCOSIS
     Dosage: UNK
     Route: 065
     Dates: start: 20110115, end: 20110308
  10. VICCLOX [Concomitant]
     Indication: ANTIVIRAL PROPHYLAXIS
     Dosage: UNK
     Route: 065
     Dates: start: 20110120, end: 20110303
  11. ALKERAN [Concomitant]
     Indication: NON-HODGKIN^S LYMPHOMA
     Dosage: UNK
     Route: 065
     Dates: start: 20110124, end: 20110125
  12. PROGRAF [Concomitant]
     Indication: PROPHYLAXIS AGAINST GRAFT VERSUS HOST DISEASE
     Dosage: UNK
     Route: 065
     Dates: start: 20110126, end: 20110307
  13. HYDROCORTISONE [Concomitant]
     Indication: ALLERGY PROPHYLAXIS
     Dosage: UNK
     Route: 065
     Dates: start: 20110127, end: 20110127
  14. VENOGLOBLIN-IH [Concomitant]
     Indication: INFECTION PROPHYLAXIS
     Dosage: UNK
     Route: 065
     Dates: start: 20110127, end: 20110303
  15. METHOTREXATE [Concomitant]
     Indication: PROPHYLAXIS AGAINST GRAFT VERSUS HOST DISEASE
     Dosage: UNK
     Route: 065
     Dates: start: 20110128, end: 20110207
  16. KEITEN [Concomitant]
     Indication: PNEUMONIA
     Dosage: UNK
     Route: 065
     Dates: start: 20110202, end: 20110215
  17. RITUXAN [Concomitant]
     Indication: NON-HODGKIN^S LYMPHOMA
     Dosage: UNK
     Route: 065
     Dates: start: 20110216, end: 20110302
  18. ISOZOL [Concomitant]
     Indication: PROPHYLAXIS
     Dosage: UNK
     Route: 065
     Dates: start: 20110216, end: 20110216
  19. ADRIACIN [Concomitant]
     Indication: NON-HODGKIN^S LYMPHOMA
     Dosage: UNK
     Route: 065
     Dates: start: 20110307, end: 20110308

REACTIONS (9)
  - Anxiety [Recovered/Resolved]
  - Gastritis [Fatal]
  - Oedema [Fatal]
  - Pain [Fatal]
  - Intracranial pressure increased [Fatal]
  - Sepsis [Recovered/Resolved]
  - Neutropenia [Recovered/Resolved]
  - Antithrombin III deficiency [Recovered/Resolved]
  - Non-Hodgkin^s lymphoma [Fatal]
